FAERS Safety Report 9045703 (Version 1)
Quarter: 2013Q1

REPORT INFORMATION
  Report Type: Report from Study
  Country: US (occurrence: US)
  Receive Date: 20130131
  Receipt Date: 20130131
  Transmission Date: 20140127
  Serious: No
  Sender: FDA-Public Use
  Company Number: US-ABBOTT-12P-163-1013349-00

PATIENT
  Age: 48 Year
  Sex: Male

DRUGS (8)
  1. HUMIRA [Suspect]
     Indication: PSORIATIC ARTHROPATHY
  2. FOLIC ACID [Concomitant]
     Indication: PROPHYLAXIS
  3. METHOTREXATE [Concomitant]
     Indication: PROSTATIC SPECIFIC ANTIGEN
     Dosage: 10 TABLETS WEEKLY
  4. AMLODIPINE [Concomitant]
     Indication: HYPERTENSION
  5. BUPROPION [Concomitant]
     Indication: DEPRESSION
  6. BUPROPION HCL [Concomitant]
     Indication: DEPRESSION
  7. PRILOSEC [Concomitant]
     Indication: GASTROOESOPHAGEAL REFLUX DISEASE
  8. VENLAFAXINE HYDROCHLORIDE [Concomitant]
     Indication: DEPRESSION

REACTIONS (2)
  - Respiratory tract congestion [Not Recovered/Not Resolved]
  - Dyspnoea [Not Recovered/Not Resolved]
